FAERS Safety Report 12316739 (Version 1)
Quarter: 2016Q2

REPORT INFORMATION
  Report Type: Spontaneous
  Country: US (occurrence: US)
  Receive Date: 20160429
  Receipt Date: 20160429
  Transmission Date: 20160815
  Serious: Yes (Hospitalization, Other)
  Sender: FDA-Public Use
  Company Number: US-BEH-2016061700

PATIENT
  Age: 81 Year
  Sex: Female
  Weight: 36 kg

DRUGS (23)
  1. LIDOCAINE. [Concomitant]
     Active Substance: LIDOCAINE
  2. HIZENTRA [Suspect]
     Active Substance: HUMAN IMMUNOGLOBULIN G
  3. CORTICOSTEROIDS [Concomitant]
     Active Substance: CORTICOSTEROID NOS
  4. DALIRESP [Concomitant]
     Active Substance: ROFLUMILAST
  5. RESTASIS [Concomitant]
     Active Substance: CYCLOSPORINE
  6. SALAGEN [Concomitant]
     Active Substance: PILOCARPINE HYDROCHLORIDE
  7. SPIRIVA [Concomitant]
     Active Substance: TIOTROPIUM BROMIDE MONOHYDRATE
  8. XOPENEX [Concomitant]
     Active Substance: LEVALBUTEROL HYDROCHLORIDE
  9. HIZENTRA [Suspect]
     Active Substance: HUMAN IMMUNOGLOBULIN G
     Indication: IMMUNODEFICIENCY COMMON VARIABLE
  10. PERCOCET [Concomitant]
     Active Substance: ACETAMINOPHEN\OXYCODONE HYDROCHLORIDE
  11. ANASTROZOLE. [Concomitant]
     Active Substance: ANASTROZOLE
  12. DIPHENHYDRAMINE. [Concomitant]
     Active Substance: DIPHENHYDRAMINE
  13. XOLAIR [Concomitant]
     Active Substance: OMALIZUMAB
  14. CALCIUM [Concomitant]
     Active Substance: CALCIUM
  15. HIZENTRA [Suspect]
     Active Substance: HUMAN IMMUNOGLOBULIN G
     Route: 058
     Dates: start: 20110302
  16. EPIPEN [Concomitant]
     Active Substance: EPINEPHRINE
  17. PREDNISONE. [Concomitant]
     Active Substance: PREDNISONE
  18. OMEPRAZOLE. [Concomitant]
     Active Substance: OMEPRAZOLE
  19. ACETAMINOPHEN. [Concomitant]
     Active Substance: ACETAMINOPHEN
  20. BUDESONIDE. [Concomitant]
     Active Substance: BUDESONIDE
  21. LISINOPRIL. [Concomitant]
     Active Substance: LISINOPRIL
  22. ASTELIN [Concomitant]
     Active Substance: AZELASTINE HYDROCHLORIDE
  23. MULTIVITAMINS [Concomitant]
     Active Substance: VITAMINS

REACTIONS (2)
  - Cataract [Unknown]
  - Cataract operation [Unknown]

NARRATIVE: CASE EVENT DATE: 201603
